FAERS Safety Report 16800204 (Version 1)
Quarter: 2019Q4

REPORT INFORMATION
  Report Type: Spontaneous
  Country: US (occurrence: US)
  Receive Date: 20190912
  Receipt Date: 20190912
  Transmission Date: 20200122
  Serious: Yes (Other)
  Sender: FDA-Public Use
  Company Number: None

PATIENT
  Age: 95 Year
  Sex: Female
  Weight: 49.5 kg

DRUGS (3)
  1. CAPECITABINE. [Suspect]
     Active Substance: CAPECITABINE
     Indication: BREAST CANCER
     Dosage: ?          OTHER FREQUENCY:3AM+2PMX7D, 7OFF;?
     Route: 048
     Dates: start: 20190718
  2. DIGOXIN. [Concomitant]
     Active Substance: DIGOXIN
  3. DILTIAZEM. [Concomitant]
     Active Substance: DILTIAZEM

REACTIONS (1)
  - Disease progression [None]
